FAERS Safety Report 7295339-9 (Version None)
Quarter: 2011Q1

REPORT INFORMATION
  Report Type: 
  Country: None (occurrence: None)
  Receive Date: 20110203
  Receipt Date: 20110120
  Transmission Date: 20110831
  Serious: No
  Sender: FDA-Public Use
  Company Number: 2011-00024

PATIENT
  Age: 47 Year
  Sex: Female
  Weight: 80.7403 kg

DRUGS (1)
  1. ZICAM COLD REMEDY RAPIDMELTS WITH VITAMIN C [Suspect]
     Dosage: Q 4 HOURS X 9 DAYS
     Dates: start: 20110116, end: 20110124

REACTIONS (3)
  - AGEUSIA [None]
  - DRUG ADMINISTRATION ERROR [None]
  - HYPOAESTHESIA ORAL [None]
